FAERS Safety Report 7594250-3 (Version None)
Quarter: 2011Q3

REPORT INFORMATION
  Report Type: 
  Country: None (occurrence: None)
  Receive Date: 20110706
  Receipt Date: 20110706
  Transmission Date: 20111222
  Serious: No
  Sender: FDA-Public Use
  Company Number: None

PATIENT
  Age: 59 Year
  Sex: Female
  Weight: 99.79 kg

DRUGS (3)
  1. CELEBREX [Concomitant]
     Indication: MUSCLE SPASMS
     Dosage: 1
     Route: 048
     Dates: start: 20110702, end: 20110702
  2. HYDROCODONE BITARTRATE AND ACETAMINOPHEN [Suspect]
     Indication: PAIN
     Dosage: 1
     Route: 048
     Dates: start: 20110702, end: 20110703
  3. HYDROCODONE BITARTRATE AND ACETAMINOPHEN [Suspect]
     Indication: MUSCLE SPASMS
     Dosage: 1
     Route: 048
     Dates: start: 20110702, end: 20110703

REACTIONS (6)
  - SKIN DISCOLOURATION [None]
  - HYPERHIDROSIS [None]
  - COLD SWEAT [None]
  - FEELING HOT [None]
  - NAUSEA [None]
  - FEELING ABNORMAL [None]
